FAERS Safety Report 14604838 (Version 1)
Quarter: 2018Q1

REPORT INFORMATION
  Report Type: Not Available
  Country: US (occurrence: US)
  Receive Date: 20180306
  Receipt Date: 20180306
  Transmission Date: 20180509
  Serious: Yes (Disabling, Other)
  Sender: FDA-Public Use
  Company Number: US-C B FLEET CO INC-201802-US-000350

PATIENT
  Sex: Female

DRUGS (2)
  1. BC CHERRY [Suspect]
     Active Substance: ASPIRIN\CAFFEINE
     Indication: PAIN
     Route: 048
  2. ACETAMINOPHEN. [Suspect]
     Active Substance: ACETAMINOPHEN
     Indication: PAIN
     Route: 048

REACTIONS (2)
  - Hepatic cirrhosis [Unknown]
  - Incorrect drug administration duration [Unknown]
